FAERS Safety Report 5355354-9 (Version None)
Quarter: 2007Q2

REPORT INFORMATION
  Report Type: 
  Country: None (occurrence: None)
  Receive Date: 20070601
  Receipt Date: 20070430
  Transmission Date: 20071010
  Serious: Yes (Hospitalization)
  Sender: FDA-Public Use
  Company Number: 155871USA

PATIENT
  Age: 66 Year
  Sex: Male

DRUGS (5)
  1. AZILECT [Suspect]
     Dosage: 1 MG (1 MG,1 IN 1 D),ORAL
     Route: 048
     Dates: start: 20060817, end: 20061001
  2. SINEMET [Concomitant]
  3. LISINOPRIL [Concomitant]
  4. PRAVASTATIN [Concomitant]
  5. DOXAZOSIN MESYLATE [Concomitant]

REACTIONS (2)
  - GASTROOESOPHAGEAL REFLUX DISEASE [None]
  - INTESTINAL OBSTRUCTION [None]
